FAERS Safety Report 25612104 (Version 1)
Quarter: 2025Q3

REPORT INFORMATION
  Report Type: Other
  Country: US (occurrence: US)
  Receive Date: 20250728
  Receipt Date: 20250728
  Transmission Date: 20251021
  Serious: Yes (Other)
  Sender: FAGRON COMPOUNDING SERVICES D/B/A FAGRON STERILE SERVICES, WICHITA, KS
  Company Number: US-Fagron Sterile Services-2181347

PATIENT
  Age: 28 Year
  Sex: Female
  Weight: 86.364 kg

DRUGS (1)
  1. OXYTOCIN [Suspect]
     Active Substance: OXYTOCIN
     Dates: start: 20250618, end: 20250712

REACTIONS (1)
  - Drug ineffective [Recovered/Resolved]
